FAERS Safety Report 12970621 (Version 1)
Quarter: 2016Q4

REPORT INFORMATION
  Report Type: Spontaneous
  Country: US (occurrence: US)
  Receive Date: 20161123
  Receipt Date: 20161123
  Transmission Date: 20170207
  Serious: Yes (Other)
  Sender: FDA-Public Use
  Company Number: US-SAGENTPRD-2016-US-000062

PATIENT
  Age: 62 Year
  Sex: Female

DRUGS (3)
  1. PROPARACAINE [Concomitant]
     Active Substance: PROPARACAINE
     Dosage: TOPICALLY ADMINISTERED
     Route: 047
     Dates: start: 20161101, end: 20161101
  2. GLYDO [Suspect]
     Active Substance: LIDOCAINE HYDROCHLORIDE ANHYDROUS
     Dosage: TOPICALLY ADMINISTERED
     Route: 047
     Dates: start: 20161101, end: 20161101
  3. PILOCARPINE. [Concomitant]
     Active Substance: PILOCARPINE
     Dosage: TOPICALLY ADMINISTERED
     Route: 047
     Dates: start: 20161101, end: 20161101

REACTIONS (2)
  - Corneal abrasion [Unknown]
  - Eye pain [Unknown]

NARRATIVE: CASE EVENT DATE: 20161101
